FAERS Safety Report 6148485-7 (Version None)
Quarter: 2009Q2

REPORT INFORMATION
  Report Type: 
  Country: None (occurrence: None)
  Receive Date: 20090408
  Receipt Date: 20090405
  Transmission Date: 20091009
  Serious: Yes (Death)
  Sender: FDA-Public Use
  Company Number: PHHY2009GB12802

PATIENT
  Age: 3 Month

DRUGS (4)
  1. CYCLOSPORINE [Suspect]
     Indication: BONE MARROW TRANSPLANT
  2. CYCLOSPORINE [Suspect]
     Indication: PROPHYLAXIS AGAINST GRAFT VERSUS HOST DISEASE
  3. BUSULPHAN [Suspect]
     Indication: BONE MARROW TRANSPLANT
  4. CYCLOPHOSPHAMIDE [Suspect]
     Indication: BONE MARROW TRANSPLANT

REACTIONS (1)
  - VENOOCCLUSIVE DISEASE [None]
